FAERS Safety Report 5314282-5 (Version None)
Quarter: 2007Q2

REPORT INFORMATION
  Report Type: 
  Country: None (occurrence: None)
  Receive Date: 20070425
  Receipt Date: 20070410
  Transmission Date: 20071010
  Serious: Yes (Other)
  Sender: FDA-Public Use
  Company Number: 2007000472

PATIENT
  Age: 65 Year
  Weight: 63.5 kg

DRUGS (3)
  1. ERLOTINIB (TABLET) [Suspect]
     Indication: OVARIAN CANCER
     Dosage: 150 MG, ORAL
     Route: 048
     Dates: start: 20060316, end: 20070316
  2. BEVACIZUMAB (INJECTION FOR INFUSION) [Suspect]
     Indication: OVARIAN CANCER
     Dosage: 630 MG (Q2W), INTRAVENOUS
     Route: 042
     Dates: start: 20060316
  3. LOTREL [Concomitant]

REACTIONS (4)
  - CALCINOSIS [None]
  - DRUG TOXICITY [None]
  - METASTASIS [None]
  - NASAL SEPTUM PERFORATION [None]
